FAERS Safety Report 6454874-3 (Version None)
Quarter: 2009Q4

REPORT INFORMATION
  Report Type: 
  Country: None (occurrence: None)
  Receive Date: 20091124
  Receipt Date: 20091118
  Transmission Date: 20100525
  Serious: Yes (Other)
  Sender: FDA-Public Use
  Company Number: US-MERCK-0906USA04969

PATIENT
  Sex: Female

DRUGS (2)
  1. FOSAMAX [Suspect]
     Indication: OSTEOPOROSIS
     Route: 048
     Dates: end: 20070107
  2. FOSAMAX [Suspect]
     Route: 048
     Dates: end: 20070107

REACTIONS (3)
  - NON-HODGKIN'S LYMPHOMA [None]
  - OSTEONECROSIS [None]
  - TOOTH LOSS [None]
